FAERS Safety Report 7540140-1 (Version None)
Quarter: 2011Q2

REPORT INFORMATION
  Report Type: 
  Country: None (occurrence: None)
  Receive Date: 20110610
  Receipt Date: 20110529
  Transmission Date: 20111010
  Serious: Yes (Other)
  Sender: FDA-Public Use
  Company Number: SG-BAYER-2011-046205

PATIENT
  Age: 56 Year
  Sex: Female

DRUGS (3)
  1. ASPIRIN [Suspect]
  2. ACETAMINOPHEN [Suspect]
  3. PENICILLIN [Suspect]

REACTIONS (1)
  - ANGIOEDEMA [None]
